FAERS Safety Report 5126428-2 (Version None)
Quarter: 2006Q4

REPORT INFORMATION
  Report Type: 
  Country: None (occurrence: None)
  Receive Date: 20061010
  Receipt Date: 20060928
  Transmission Date: 20070319
  Serious: Yes (Other)
  Sender: FDA-Public Use
  Company Number: 2006117697

PATIENT
  Sex: 0

DRUGS (1)
  1. DRAMAMINE [Suspect]
     Dosage: 12 TABLETS IN ONE DAY, ORAL
     Route: 048
     Dates: start: 20060927

REACTIONS (2)
  - FEELING DRUNK [None]
  - INCORRECT DOSE ADMINISTERED [None]
